FAERS Safety Report 5787054-5 (Version None)
Quarter: 2008Q2

REPORT INFORMATION
  Report Type: 
  Country: None (occurrence: None)
  Receive Date: 20080625
  Receipt Date: 20080618
  Transmission Date: 20081010
  Serious: Yes (Other)
  Sender: FDA-Public Use
  Company Number: PHFR2008GB01136

PATIENT
  Sex: Male

DRUGS (10)
  1. CLOZARIL [Suspect]
     Indication: SCHIZOPHRENIA
     Dosage: UNK
     Route: 048
     Dates: start: 20080308, end: 20080314
  2. AMISULPRIDE [Concomitant]
     Indication: SCHIZOPHRENIA
     Dosage: 800 MG, DAILY
     Route: 048
  3. LAMOTRIGINE [Concomitant]
     Indication: AFFECTIVE DISORDER
     Dosage: 200 MG, DAILY
     Route: 048
  4. TRAMADOL HCL [Concomitant]
  5. ACETAMINOPHEN [Concomitant]
  6. IBUROFEN [Concomitant]
  7. MIRTAZAPINE [Concomitant]
     Indication: DEPRESSION
     Dosage: 45 MG, DAILY
     Route: 048
  8. LORAZEPAM [Concomitant]
  9. SIMVASTATIN [Concomitant]
     Indication: BLOOD CHOLESTEROL INCREASED
     Dosage: 20 MG, DAILY
     Route: 048
  10. SUMATRIPTAN SUCCINATE [Concomitant]
     Indication: MIGRAINE
     Dosage: 50 MG, DAILY
     Route: 048

REACTIONS (8)
  - ALANINE AMINOTRANSFERASE INCREASED [None]
  - COMMUNICATION DISORDER [None]
  - CONFUSIONAL STATE [None]
  - DISORIENTATION [None]
  - GAMMA-GLUTAMYLTRANSFERASE INCREASED [None]
  - HALLUCINATION, VISUAL [None]
  - HYPERHIDROSIS [None]
  - MALAISE [None]
